FAERS Safety Report 14794547 (Version 1)
Quarter: 2018Q2

REPORT INFORMATION
  Report Type: Spontaneous
  Country: BR (occurrence: BR)
  Receive Date: 20180423
  Receipt Date: 20180423
  Transmission Date: 20180711
  Serious: Yes (Death, Other)
  Sender: FDA-Public Use
  Company Number: BR-SA-2018SA111609

PATIENT
  Age: 1 Year
  Sex: Male
  Weight: 8.25 kg

DRUGS (6)
  1. ITRACONAZOLE. [Concomitant]
     Active Substance: ITRACONAZOLE
     Indication: PROPHYLAXIS
     Route: 065
  2. BUSULFAN. [Concomitant]
     Active Substance: BUSULFAN
     Indication: BONE MARROW CONDITIONING REGIMEN
     Dosage: DOSAGE AUC CALCULATION IN 3 HOURS
     Route: 065
     Dates: start: 20180406
  3. THYMOGLOBULINE [Suspect]
     Active Substance: LAPINE T-LYMPHOCYTE IMMUNE GLOBULIN
     Indication: BONE MARROW CONDITIONING REGIMEN
     Route: 042
     Dates: start: 20180406, end: 20180406
  4. CIPROFLOXACIN HYDROCHLORIDE. [Concomitant]
     Active Substance: CIPROFLOXACIN HYDROCHLORIDE
     Indication: PROPHYLAXIS
     Route: 065
  5. HEPARIN [Suspect]
     Active Substance: HEPARIN SODIUM
     Indication: VENOOCCLUSIVE LIVER DISEASE
     Dosage: FORM: INFUSION
     Route: 065
  6. FLUDARABINE PHOSPHATE. [Concomitant]
     Active Substance: FLUDARABINE PHOSPHATE
     Indication: BONE MARROW CONDITIONING REGIMEN
     Dosage: DOSAGE/ FREQUENCY: 40MG/M?/ DAY IN 1 HOUR
     Route: 065
     Dates: start: 20180406

REACTIONS (9)
  - Cardio-respiratory arrest [Fatal]
  - Pain [Unknown]
  - Gastrointestinal perforation [Unknown]
  - Vomiting [Unknown]
  - Abdominal distension [Unknown]
  - Crying [Unknown]
  - Gastrointestinal haemorrhage [Unknown]
  - Abdominal pain [Unknown]
  - Agitation [Unknown]

NARRATIVE: CASE EVENT DATE: 201804
